FAERS Safety Report 25150533 (Version 1)
Quarter: 2025Q2

REPORT INFORMATION
  Report Type: Spontaneous
  Country: US (occurrence: US)
  Receive Date: 20250402
  Receipt Date: 20250402
  Transmission Date: 20250717
  Serious: No
  Sender: ORPHAZYME
  Company Number: US-ZEVRA DENMARK A/S-ORP-000527

PATIENT
  Age: 15 Year

DRUGS (2)
  1. MIPLYFFA [Suspect]
     Active Substance: ARIMOCLOMOL CITRATE
     Indication: Product used for unknown indication
  2. MIGLUSTAT [Suspect]
     Active Substance: MIGLUSTAT
     Indication: Product used for unknown indication

REACTIONS (1)
  - Diarrhoea [Not Recovered/Not Resolved]
